FAERS Safety Report 10083549 (Version 1)
Quarter: 2014Q2

REPORT INFORMATION
  Report Type: Spontaneous
  Country: US (occurrence: None)
  Receive Date: 20140416
  Receipt Date: 20140416
  Transmission Date: 20141212
  Serious: Yes (Hospitalization)
  Sender: FDA-Public Use
  Company Number: None

PATIENT
  Age: 53 Year
  Sex: Male
  Weight: 101.3 kg

DRUGS (11)
  1. CYCLOPHOSPHAMIDE [Suspect]
  2. DOXORUBICIN HYDROCHLORIDE [Suspect]
  3. ETOPOSIDE (VP-16) [Suspect]
  4. PREDNISONE [Suspect]
  5. VINCRISTINE SULFATE [Suspect]
  6. COLACE [Concomitant]
  7. CRESTOR [Concomitant]
  8. HYZAAR [Concomitant]
  9. OXYCODONE [Concomitant]
  10. SYNTHROID [Concomitant]
  11. VALACYCLOVIR [Concomitant]

REACTIONS (4)
  - Hypotension [None]
  - Renal failure acute [None]
  - Dehydration [None]
  - Pyrexia [None]
